FAERS Safety Report 7550404-3 (Version None)
Quarter: 2011Q2

REPORT INFORMATION
  Report Type: 
  Country: None (occurrence: None)
  Receive Date: 20110615
  Receipt Date: 20110603
  Transmission Date: 20111010
  Serious: Yes (Disabling, Other)
  Sender: FDA-Public Use
  Company Number: US-BAYER-200939236NA

PATIENT
  Age: 63 Year
  Sex: Female
  Weight: 61.364 kg

DRUGS (19)
  1. MAGNEVIST [Suspect]
     Route: 042
     Dates: start: 20050707, end: 20050707
  2. COUMADIN [Concomitant]
     Dosage: 4 MG, UNK
  3. MULTIHANCE [Suspect]
     Indication: PRODUCT USED FOR UNKNOWN INDICATION
  4. MAGNEVIST [Suspect]
     Indication: ANGIOGRAM
     Dates: start: 20001002, end: 20001002
  5. GADOLINIUM IN UNSPECIFIED DRUG [Suspect]
     Dates: start: 20000829, end: 20000829
  6. PHOSLO [Concomitant]
  7. OMNISCAN [Suspect]
     Indication: PRODUCT USED FOR UNKNOWN INDICATION
  8. PROHANCE [Suspect]
     Indication: COMPUTERISED TOMOGRAM HEAD
  9. RENAGEL [Concomitant]
  10. ZOCOR [Concomitant]
     Dosage: 40 MG, UNK
  11. ACETAMINOPHEN [Concomitant]
  12. MAGNEVIST [Suspect]
     Dates: start: 20001104, end: 20001104
  13. OPTIMARK [Suspect]
     Indication: NUCLEAR MAGNETIC RESONANCE IMAGING BRAIN
     Dates: start: 20060203, end: 20060203
  14. NEPHROCAPS [Concomitant]
     Dosage: 1 TAB UNK, UNK
  15. MAGNEVIST [Suspect]
     Dates: start: 20001212, end: 20001212
  16. PROTONIX [Concomitant]
     Dosage: 40 MG, UNK
  17. RENAGEL [Concomitant]
     Dosage: 1600 MG, TID
  18. OPTIMARK [Suspect]
     Dates: start: 20060922, end: 20060922
  19. NEPHROCAPS [Concomitant]

REACTIONS (22)
  - JOINT CONTRACTURE [None]
  - SKIN HYPERTROPHY [None]
  - SKIN FIBROSIS [None]
  - SKIN TIGHTNESS [None]
  - SKIN ATROPHY [None]
  - SKIN DISCOLOURATION [None]
  - SKIN INDURATION [None]
  - NEPHROGENIC SYSTEMIC FIBROSIS [None]
  - INDURATION [None]
  - SKIN WARM [None]
  - JOINT RANGE OF MOTION DECREASED [None]
  - PAIN [None]
  - DEFORMITY [None]
  - MOBILITY DECREASED [None]
  - OEDEMA PERIPHERAL [None]
  - GENERAL PHYSICAL HEALTH DETERIORATION [None]
  - ABASIA [None]
  - SCAR [None]
  - HYPOAESTHESIA [None]
  - ERYTHEMA [None]
  - SKIN HYPERPIGMENTATION [None]
  - PARAESTHESIA [None]
